FAERS Safety Report 5902901-1 (Version None)
Quarter: 2008Q3

REPORT INFORMATION
  Report Type: 
  Country: None (occurrence: None)
  Receive Date: 20080930
  Receipt Date: 20080924
  Transmission Date: 20090109
  Serious: Yes (Life-Threatening, Hospitalization, Other)
  Sender: FDA-Public Use
  Company Number: PHHY2008BR22685

PATIENT
  Sex: Female

DRUGS (8)
  1. FORASEQ [Suspect]
     Indication: ASTHMA
     Dosage: UNK
     Dates: start: 20010101, end: 20070901
  2. FORASEQ [Suspect]
     Dosage: 12/200 MCG
     Dates: start: 20080903, end: 20080920
  3. ENALAPRIL MALEATE [Concomitant]
     Indication: HYPERTENSION
     Dosage: 20 MG, EVERY 12 HOURS
     Route: 048
  4. AMLODIPINE BESYLATE [Concomitant]
     Indication: HYPERTENSION
     Dosage: 1 DF, ONCE/SINGLE
     Route: 048
  5. HYGROTON [Concomitant]
     Indication: HYPERTENSION
     Dosage: 1 DF, ONCE/SINGLE
     Route: 048
  6. DRUG THERAPY NOS [Concomitant]
  7. SALBUTAMOL [Concomitant]
     Indication: ASTHMA
     Dosage: UNK
  8. SALBUTAMOL [Concomitant]

REACTIONS (13)
  - ASTHMA [None]
  - BRAIN HYPOXIA [None]
  - DRY SKIN [None]
  - ECONOMIC PROBLEM [None]
  - GLAUCOMA [None]
  - MEMORY IMPAIRMENT [None]
  - OSTEOPOROSIS [None]
  - PRURITUS GENERALISED [None]
  - RASH PAPULAR [None]
  - RESPIRATORY ARREST [None]
  - SKIN HYPERTROPHY [None]
  - SYNCOPE [None]
  - TREATMENT NONCOMPLIANCE [None]
